FAERS Safety Report 5642718-9 (Version None)
Quarter: 2008Q1

REPORT INFORMATION
  Report Type: 
  Country: None (occurrence: None)
  Receive Date: 20080227
  Receipt Date: 20080227
  Transmission Date: 20080703
  Serious: Yes (Hospitalization)
  Sender: FDA-Public Use
  Company Number: None

PATIENT
  Sex: Male
  Weight: 81.6475 kg

DRUGS (5)
  1. ALTACE [Suspect]
     Indication: HYPERTENSION
     Dosage: PO  (THERAPY DATES: PRIOR TO ADMISSION)
     Route: 048
  2. TOPROL-XL [Suspect]
     Indication: HYPERTENSION
     Dosage: PO (THERAPY DATES: PRIOR TO ADMISSION)
     Route: 048
  3. ASPIRIN [Concomitant]
  4. PLAVIX [Concomitant]
  5. LIPITOR [Concomitant]

REACTIONS (1)
  - CHEST DISCOMFORT [None]
